FAERS Safety Report 7279871-X (Version None)
Quarter: 2011Q1

REPORT INFORMATION
  Report Type: 
  Country: None (occurrence: None)
  Receive Date: 20110208
  Receipt Date: 20110128
  Transmission Date: 20110831
  Serious: Yes (Hospitalization)
  Sender: FDA-Public Use
  Company Number: CA-JNJFOC-20110200540

PATIENT
  Sex: Male
  Weight: 109.5 kg

DRUGS (7)
  1. REMICADE [Suspect]
     Route: 042
  2. ATACAND [Concomitant]
  3. PREVACID [Concomitant]
  4. ZANTAC [Concomitant]
  5. REMICADE [Suspect]
     Indication: CROHN'S DISEASE
     Route: 042
  6. PIOGLITAZONE [Concomitant]
  7. JANUVIA [Concomitant]

REACTIONS (2)
  - ABSCESS [None]
  - FISTULA [None]
